FAERS Safety Report 6370742-X (Version None)
Quarter: 2009Q3

REPORT INFORMATION
  Report Type: 
  Country: None (occurrence: None)
  Receive Date: 20090923
  Receipt Date: 20070509
  Transmission Date: 20100115
  Serious: Yes (Hospitalization, Other)
  Sender: FDA-Public Use
  Company Number: US-ASTRAZENECA-2006UW25288

PATIENT
  Age: 22184 Day
  Sex: Female
  Weight: 70.3 kg

DRUGS (31)
  1. SEROQUEL [Suspect]
     Indication: DEPRESSION
     Dosage: 25-50 MG
     Route: 048
     Dates: start: 20030401, end: 20041001
  2. SEROQUEL [Suspect]
     Indication: BIPOLAR DISORDER
     Dosage: 25-50 MG
     Route: 048
     Dates: start: 20030401, end: 20041001
  3. SEROQUEL [Suspect]
     Route: 048
     Dates: start: 20031001, end: 20031101
  4. SEROQUEL [Suspect]
     Route: 048
     Dates: start: 20031001, end: 20031101
  5. SEROQUEL [Suspect]
     Dosage: 100MG - 800 MG
     Route: 048
     Dates: start: 20021022
  6. SEROQUEL [Suspect]
     Dosage: 100MG - 800 MG
     Route: 048
     Dates: start: 20021022
  7. SEROQUEL [Suspect]
     Route: 048
     Dates: start: 20050101
  8. SEROQUEL [Suspect]
     Route: 048
     Dates: start: 20050101
  9. ABILIFY [Concomitant]
     Dosage: 5-15 MG
     Route: 048
  10. HALDOL [Concomitant]
     Route: 065
  11. CYCLOBENZAPRINE [Concomitant]
     Route: 048
  12. NEURONTIN [Concomitant]
     Route: 048
  13. EVISTA [Concomitant]
     Route: 048
  14. LIPITOR [Concomitant]
     Dosage: 10-20 MG,DAILY
     Route: 048
  15. DIOVAN [Concomitant]
     Route: 048
  16. SINEMET [Concomitant]
     Dosage: 25-100 MG
     Route: 048
  17. PLAVIX [Concomitant]
     Route: 048
  18. AMBIEN [Concomitant]
     Dosage: 10-16 MG
     Route: 048
     Dates: end: 20060112
  19. CLONAZEPAM [Concomitant]
     Dosage: 0.5-1 MG
     Route: 048
  20. MECLIZINE [Concomitant]
     Route: 048
  21. ZOCOR [Concomitant]
     Route: 048
  22. QUINAPRIL [Concomitant]
     Route: 048
  23. FLUOXETINE HCL [Concomitant]
     Route: 048
  24. LITHIUM CARBONATE [Concomitant]
     Route: 048
  25. REQUIP [Concomitant]
     Route: 048
  26. CELEXA [Concomitant]
     Route: 048
  27. PHENERGAN [Concomitant]
     Route: 048
  28. DEPAKOTE [Concomitant]
     Dosage: 250-500 MG
     Route: 048
     Dates: end: 20060112
  29. MIRAPEX [Concomitant]
     Dosage: 0.25 TO 0.5 MG
     Route: 048
  30. GEODON [Concomitant]
     Route: 048
  31. WELLBUTRIN [Concomitant]
     Route: 048

REACTIONS (25)
  - AMNESIA [None]
  - ARTHRALGIA [None]
  - BLEPHARITIS [None]
  - CATARACT [None]
  - CONTUSION [None]
  - COUGH [None]
  - DIABETES MELLITUS [None]
  - FATIGUE [None]
  - HAEMATOCHEZIA [None]
  - HIATUS HERNIA [None]
  - HYPERLIPIDAEMIA [None]
  - HYPOKALAEMIA [None]
  - HYPOTENSION [None]
  - INTRAOCULAR LENS IMPLANT [None]
  - LARYNGITIS [None]
  - OEDEMA PERIPHERAL [None]
  - OSTEOPOROSIS [None]
  - PAIN IN EXTREMITY [None]
  - PERIODIC LIMB MOVEMENT DISORDER [None]
  - PHARYNGITIS [None]
  - PRESYNCOPE [None]
  - REGURGITATION [None]
  - ROTATOR CUFF SYNDROME [None]
  - SENSATION OF FOREIGN BODY [None]
  - SOMNAMBULISM [None]
